FAERS Safety Report 7699273-1 (Version None)
Quarter: 2011Q3

REPORT INFORMATION
  Report Type: 
  Country: None (occurrence: None)
  Receive Date: 20110819
  Receipt Date: 20110121
  Transmission Date: 20111222
  Serious: Yes (Other)
  Sender: FDA-Public Use
  Company Number: US-AMGEN-USASP2010006315

PATIENT
  Age: 57 Year
  Sex: Female

DRUGS (3)
  1. NPLATE [Suspect]
     Dates: start: 20091222, end: 20100106
  2. CORTICOSTEROIDS [Concomitant]
     Indication: IDIOPATHIC THROMBOCYTOPENIC PURPURA
  3. NPLATE [Suspect]
     Indication: IDIOPATHIC THROMBOCYTOPENIC PURPURA
     Dosage: 100 A?G, QWK
     Route: 058
     Dates: start: 20091222, end: 20100219

REACTIONS (3)
  - SPLENOMEGALY [None]
  - HAEMORRHAGE [None]
  - CONTUSION [None]
